FAERS Safety Report 13609607 (Version 1)
Quarter: 2017Q2

REPORT INFORMATION
  Report Type: Spontaneous
  Country: FR (occurrence: FR)
  Receive Date: 20170602
  Receipt Date: 20170602
  Transmission Date: 20170830
  Serious: Yes (Congenital Anomaly)
  Sender: FDA-Public Use
  Company Number: FR-009507513-1705FRA012243

PATIENT
  Age: 0 Day
  Sex: Female
  Weight: 1.81 kg

DRUGS (2)
  1. NORSET [Suspect]
     Active Substance: MIRTAZAPINE
     Dosage: UNK UNK, QD
     Route: 064
     Dates: start: 20121010, end: 20130505
  2. XANAX [Suspect]
     Active Substance: ALPRAZOLAM
     Dosage: 1 MG, QD
     Route: 064

REACTIONS (3)
  - Congenital choroid plexus cyst [Unknown]
  - Talipes [Unknown]
  - Vulval disorder [Unknown]

NARRATIVE: CASE EVENT DATE: 20130505
